FAERS Safety Report 11009125 (Version 1)
Quarter: 2015Q2

REPORT INFORMATION
  Report Type: Spontaneous
  Country: US (occurrence: US)
  Receive Date: 20150410
  Receipt Date: 20150410
  Transmission Date: 20150821
  Serious: Yes (Hospitalization)
  Sender: FDA-Public Use
  Company Number: US-JNJFOC-20150313760

PATIENT
  Age: 70 Year
  Sex: Male

DRUGS (3)
  1. LEVAQUIN [Concomitant]
     Active Substance: LEVOFLOXACIN
     Dates: start: 201410
  2. LIPITOR [Concomitant]
     Active Substance: ATORVASTATIN CALCIUM
  3. IMBRUVICA [Suspect]
     Active Substance: IBRUTINIB
     Indication: CHRONIC LYMPHOCYTIC LEUKAEMIA
     Route: 048
     Dates: start: 20141015

REACTIONS (5)
  - Transient ischaemic attack [Recovered/Resolved]
  - Blood pressure increased [Recovering/Resolving]
  - Sinusitis [Unknown]
  - Hypotonia [Unknown]
  - Atelectasis [Unknown]

NARRATIVE: CASE EVENT DATE: 20150306
